FAERS Safety Report 25318264 (Version 1)
Quarter: 2025Q2

REPORT INFORMATION
  Report Type: Spontaneous
  Country: US (occurrence: US)
  Receive Date: 20250515
  Receipt Date: 20250515
  Transmission Date: 20250716
  Serious: No
  Sender: AZURITY PHARMACEUTICALS
  Company Number: US-AZURITY PHARMACEUTICALS, INC.-AZR202504-001341

PATIENT
  Age: 42 Year
  Sex: Male

DRUGS (4)
  1. MYHIBBIN [Suspect]
     Active Substance: MYCOPHENOLATE MOFETIL
     Indication: Scleroderma
     Route: 048
  2. MYHIBBIN [Suspect]
     Active Substance: MYCOPHENOLATE MOFETIL
     Dosage: 1000MG (5ML) DAILY IN THE EVENING
     Route: 048
  3. MYHIBBIN [Suspect]
     Active Substance: MYCOPHENOLATE MOFETIL
     Dosage: 500MG (2.5ML) DAILY IN THE MORNING FOR 2 WEEKS
     Route: 048
  4. MYHIBBIN [Suspect]
     Active Substance: MYCOPHENOLATE MOFETIL
     Route: 048

REACTIONS (1)
  - Product use in unapproved indication [Unknown]
